FAERS Safety Report 6683939-6 (Version None)
Quarter: 2010Q2

REPORT INFORMATION
  Report Type: 
  Country: None (occurrence: None)
  Receive Date: 20100416
  Receipt Date: 20100406
  Transmission Date: 20101027
  Serious: Yes (Life-Threatening, Hospitalization)
  Sender: FDA-Public Use
  Company Number: PA-PFIZER INC-2006106963

PATIENT
  Age: 74 Year
  Sex: Male
  Weight: 81.8 kg

DRUGS (6)
  1. SUNITINIB MALATE [Suspect]
     Indication: RENAL CELL CARCINOMA
     Dosage: 50 MG, 1X/DAY
     Route: 048
     Dates: start: 20060802, end: 20060828
  2. LEVOTHYROXINE [Concomitant]
     Dosage: 5 MG, 1X/DAY
     Route: 048
     Dates: start: 20030101
  3. GLIBENCLAMIDE [Concomitant]
     Dosage: 5 MG, 1X/DAY
     Route: 048
     Dates: start: 20050101, end: 20060831
  4. NEURONTIN [Concomitant]
     Dosage: 1 TABLET/ DAY
     Route: 048
     Dates: start: 20060101, end: 20060831
  5. INSULIN [Concomitant]
     Route: 058
     Dates: start: 20060831, end: 20060913
  6. GLICLAZIDE [Concomitant]
     Route: 048
     Dates: start: 20060913

REACTIONS (5)
  - ASTHENIA [None]
  - DEEP VEIN THROMBOSIS [None]
  - DISSEMINATED INTRAVASCULAR COAGULATION [None]
  - HYPOKALAEMIA [None]
  - HYPONATRAEMIA [None]
